FAERS Safety Report 7966146-6 (Version None)
Quarter: 2011Q4

REPORT INFORMATION
  Report Type: 
  Country: None (occurrence: None)
  Receive Date: 20111208
  Receipt Date: 20111205
  Transmission Date: 20120403
  Serious: Yes (Hospitalization, Other)
  Sender: FDA-Public Use
  Company Number: US-PFIZER INC-2011151504

PATIENT
  Sex: Female

DRUGS (4)
  1. CHANTIX [Suspect]
     Indication: SMOKING CESSATION THERAPY
     Dosage: UNK
     Route: 048
     Dates: start: 20090401, end: 20090601
  2. ESTRATEST [Concomitant]
     Dosage: 1.25/2.5 MG
     Dates: start: 19740101
  3. SOMA [Concomitant]
     Indication: MUSCLE SPASMS
     Dosage: 350 MG, UNK
     Dates: start: 19910101
  4. TRIAMTERENE [Concomitant]
     Indication: DIURETIC THERAPY
     Dosage: 37.5 MG, UNK
     Dates: start: 20000101

REACTIONS (3)
  - INTENTIONAL OVERDOSE [None]
  - SUICIDE ATTEMPT [None]
  - DEPRESSION [None]
